FAERS Safety Report 5076623-6 (Version None)
Quarter: 2006Q3

REPORT INFORMATION
  Report Type: 
  Country: None (occurrence: None)
  Receive Date: 20060725
  Receipt Date: 20060112
  Transmission Date: 20061208
  Serious: No
  Sender: FDA-Public Use
  Company Number: 200610315BWH

PATIENT
  Age: 77 Year
  Sex: Male

DRUGS (2)
  1. SORAFENIB [Suspect]
     Indication: RENAL CELL CARCINOMA STAGE UNSPECIFIED
     Dosage: 400 MG, BID, ORAL
     Route: 048
     Dates: start: 20050901
  2. HYDROCHLOROTHIAZIDE [Concomitant]

REACTIONS (3)
  - DIARRHOEA [None]
  - FLUSHING [None]
  - HYPERTENSION [None]
